FAERS Safety Report 20206224 (Version 2)
Quarter: 2022Q1

REPORT INFORMATION
  Report Type: Spontaneous
  Country: CH (occurrence: CH)
  Receive Date: 20211220
  Receipt Date: 20211222
  Transmission Date: 20220424
  Serious: No
  Sender: FDA-Public Use
  Company Number: CH-VERTEX PHARMACEUTICALS-2021-019685

PATIENT
  Age: 11 Year

DRUGS (1)
  1. TRIKAFTA [Suspect]
     Active Substance: ELEXACAFTOR\IVACAFTOR\TEZACAFTOR
     Indication: Cystic fibrosis
     Dosage: 2 ORANGE TABS AM AND 1 BLUE TAB PM; ADULT DOSE
     Route: 048
     Dates: start: 20211110, end: 20211111

REACTIONS (1)
  - Drug hypersensitivity [Recovered/Resolved]

NARRATIVE: CASE EVENT DATE: 20211110
